FAERS Safety Report 5392013-0 (Version None)
Quarter: 2007Q3

REPORT INFORMATION
  Report Type: 
  Country: None (occurrence: None)
  Receive Date: 20070717
  Receipt Date: 20070717
  Transmission Date: 20080115
  Serious: Yes (Other)
  Sender: FDA-Public Use
  Company Number: None

PATIENT
  Age: 28 Year
  Sex: Male
  Weight: 79.8331 kg

DRUGS (1)
  1. SEPTRA DS [Suspect]
     Indication: FURUNCLE
     Dosage: DS BID - ORAL
     Route: 048
     Dates: start: 20070710, end: 20070712

REACTIONS (1)
  - RASH [None]
